FAERS Safety Report 8337248-X (Version None)
Quarter: 2012Q2

REPORT INFORMATION
  Report Type: 
  Country: None (occurrence: None)
  Receive Date: 20120502
  Receipt Date: 20120430
  Transmission Date: 20120825
  Serious: Yes (Hospitalization, Other)
  Sender: FDA-Public Use
  Company Number: 2009SP016952

PATIENT
  Age: 26 Year
  Sex: Female
  Weight: 147.419 kg

DRUGS (5)
  1. NUVARING [Suspect]
     Indication: CONTRACEPTION
     Dosage: 1 DF;QM;VAG
     Route: 067
     Dates: start: 20060301, end: 20060921
  2. PREMARIN [Concomitant]
  3. BENEFIBER /01648102/ [Concomitant]
  4. CLOTRIMAZOLE /00212501/ [Concomitant]
  5. DIFLUCAN [Concomitant]

REACTIONS (11)
  - COUGH [None]
  - RHINITIS ALLERGIC [None]
  - HAEMORRHOIDS [None]
  - NASAL TURBINATE HYPERTROPHY [None]
  - HYPOTENSION [None]
  - HYPOAESTHESIA [None]
  - ASTHENIA [None]
  - CONJUNCTIVITIS [None]
  - NAUSEA [None]
  - CHRONIC SINUSITIS [None]
  - PULMONARY EMBOLISM [None]
